FAERS Safety Report 7802659-5 (Version None)
Quarter: 2011Q4

REPORT INFORMATION
  Report Type: 
  Country: None (occurrence: None)
  Receive Date: 20111007
  Receipt Date: 20110928
  Transmission Date: 20120403
  Serious: Yes (Other)
  Sender: FDA-Public Use
  Company Number: PHEH2010US03872

PATIENT
  Sex: Male

DRUGS (7)
  1. ZOMETA [Suspect]
  2. GABAPENTIN [Concomitant]
     Indication: HOT FLUSH
     Dosage: 100 MG, TID
  3. AMBIEN [Concomitant]
     Dosage: 12.5 MG, PRN
  4. ASPIRIN [Concomitant]
     Dosage: 81 MG, QD
  5. PRILOSEC [Suspect]
     Indication: GASTROOESOPHAGEAL REFLUX DISEASE
  6. CRESTOR [Concomitant]
     Indication: BLOOD CHOLESTEROL
     Dosage: 20 MG, QD
  7. CIPROFLOXACIN [Concomitant]
     Dosage: 500 MG, UNK

REACTIONS (26)
  - INJURY [None]
  - DIVERTICULITIS [None]
  - ARTHRITIS [None]
  - GENERAL PHYSICAL HEALTH DETERIORATION [None]
  - LOCALISED INFECTION [None]
  - PERONEAL MUSCULAR ATROPHY [None]
  - DIABETES MELLITUS [None]
  - PAIN [None]
  - ANHEDONIA [None]
  - SKIN ULCER [None]
  - COLONIC POLYP [None]
  - HEPATITIS B [None]
  - PROSTATE CANCER [None]
  - RETINOPATHY HYPERTENSIVE [None]
  - DYSPNOEA EXERTIONAL [None]
  - BLINDNESS [None]
  - PHYSICAL DISABILITY [None]
  - CATARACT [None]
  - ANAL FISSURE [None]
  - COLITIS [None]
  - OSTEONECROSIS OF JAW [None]
  - ANXIETY [None]
  - FOOT DEFORMITY [None]
  - HAEMORRHOIDS [None]
  - CHRONIC OBSTRUCTIVE PULMONARY DISEASE [None]
  - ASTHMA [None]
